FAERS Safety Report 6993615-8 (Version None)
Quarter: 2010Q3

REPORT INFORMATION
  Report Type: 
  Country: None (occurrence: None)
  Receive Date: 20100917
  Receipt Date: 20100908
  Transmission Date: 20110219
  Serious: Yes (Hospitalization)
  Sender: FDA-Public Use
  Company Number: DE-CEPHALON-2010004738

PATIENT
  Sex: Male
  Weight: 65 kg

DRUGS (14)
  1. TREANDA [Suspect]
     Indication: MANTLE CELL LYMPHOMA
     Route: 042
     Dates: start: 20100728
  2. RITUXIMAB [Suspect]
     Indication: MANTLE CELL LYMPHOMA
     Route: 042
     Dates: start: 20100727
  3. TEMSIROLIMUS [Suspect]
     Indication: MANTLE CELL LYMPHOMA
     Route: 042
     Dates: start: 20100729, end: 20100826
  4. TEMSIROLIMUS [Suspect]
     Route: 042
     Dates: start: 20100901
  5. ASPIRIN [Concomitant]
     Route: 048
     Dates: start: 20000101
  6. ACETAMINOPHEN [Concomitant]
     Route: 048
  7. CETIRIZINE HCL [Concomitant]
  8. CONCOR [Concomitant]
     Dates: start: 20000101
  9. ENALAPRIL MALEATE [Concomitant]
     Dates: start: 20000101
  10. FENISTIL [Concomitant]
  11. KEVATRIL [Concomitant]
  12. PANTOPRAZOLE SODIUM [Concomitant]
  13. SIMVABETA [Concomitant]
     Dates: start: 20030101
  14. ZYLORIC [Concomitant]

REACTIONS (2)
  - HYPERTENSIVE CRISIS [None]
  - PULMONARY OEDEMA [None]
